FAERS Safety Report 7361955-9 (Version None)
Quarter: 2011Q1

REPORT INFORMATION
  Report Type: 
  Country: None (occurrence: None)
  Receive Date: 20110318
  Receipt Date: 20110315
  Transmission Date: 20110831
  Serious: Yes (Life-Threatening)
  Sender: FDA-Public Use
  Company Number: PHHY2011TW20445

PATIENT
  Age: 70 Year
  Sex: Male
  Weight: 70 kg

DRUGS (5)
  1. VANCOMYCIN [Concomitant]
     Indication: INFECTION
     Dosage: 1 MG, Q4D
     Dates: start: 20101216, end: 20101221
  2. CARVEDILOL [Suspect]
     Indication: HYPERTENSION
     Dosage: 1 DF, QD
     Dates: start: 20110225, end: 20110302
  3. PHENYTOIN [Concomitant]
     Indication: CONVULSION
     Dosage: 300 MG, AT BEDTIME
     Dates: start: 20110114, end: 20110213
  4. DILATREND [Suspect]
     Indication: HYPERTENSION
     Dosage: 1 DF/Q12M
     Dates: start: 20110126, end: 20110215
  5. VANCOMYCIN [Concomitant]
     Dosage: 750 MG, Q12H
     Dates: start: 20110110, end: 20110224

REACTIONS (5)
  - PRURITUS [None]
  - ERYTHEMA [None]
  - SKIN EXFOLIATION [None]
  - PYREXIA [None]
  - RASH GENERALISED [None]
